FAERS Safety Report 20035665 (Version 2)
Quarter: 2021Q4

REPORT INFORMATION
  Report Type: Spontaneous
  Country: US (occurrence: US)
  Receive Date: 20211104
  Receipt Date: 20211117
  Transmission Date: 20220303
  Serious: Yes (Death, Hospitalization)
  Sender: FDA-Public Use
  Company Number: US-TEVA-2021-US-1972704

PATIENT
  Age: 50 Year
  Sex: Male

DRUGS (1)
  1. LACTULOSE [Suspect]
     Active Substance: LACTULOSE
     Indication: Laxative supportive care
     Dosage: ENEMA
     Route: 054

REACTIONS (4)
  - Air embolism [Fatal]
  - Cerebrovascular accident [Fatal]
  - Portal venous gas [Fatal]
  - Pneumatosis intestinalis [Fatal]
